FAERS Safety Report 22043158 (Version 4)
Quarter: 2023Q2

REPORT INFORMATION
  Report Type: Report from Study
  Country: JP (occurrence: JP)
  Receive Date: 20230228
  Receipt Date: 20230410
  Transmission Date: 20230721
  Serious: Yes (Hospitalization)
  Sender: FDA-Public Use
  Company Number: JP-CHUGAI-2023006075

PATIENT
  Age: 63 Year
  Sex: Male
  Weight: 66.6 kg

DRUGS (10)
  1. ATEZOLIZUMAB [Suspect]
     Active Substance: ATEZOLIZUMAB
     Indication: Thymic carcinoma
     Route: 041
     Dates: start: 20230207
  2. CARBOPLATIN [Suspect]
     Active Substance: CARBOPLATIN
     Indication: Thymic carcinoma
     Route: 042
     Dates: start: 20230207
  3. PACLITAXEL [Suspect]
     Active Substance: PACLITAXEL
     Indication: Thymic carcinoma
     Route: 042
     Dates: start: 20230207
  4. AMLODIPINE BESYLATE [Concomitant]
     Active Substance: AMLODIPINE BESYLATE
     Indication: Hypertension
     Dosage: 5 MILLIGRAM, QD
     Route: 048
  5. FEBUXOSTAT [Concomitant]
     Active Substance: FEBUXOSTAT
     Indication: Hyperuricaemia
     Dosage: 10 MILLIGRAM, QD
     Route: 048
  6. LORNOXICAM [Concomitant]
     Active Substance: LORNOXICAM
     Indication: Spinal osteoarthritis
     Dosage: 4 MILLIGRAM, QD
     Route: 048
  7. TEPRENONE [Concomitant]
     Active Substance: TEPRENONE
     Indication: Gastritis prophylaxis
     Dosage: 50 MILLIGRAM, QD
     Route: 048
  8. PREGABALIN [Concomitant]
     Active Substance: PREGABALIN
     Indication: Spinal osteoarthritis
     Dosage: 75 MILLIGRAM, QD
     Route: 048
  9. CHLORPROMAZINE HYDROCHLORIDE [Concomitant]
     Active Substance: CHLORPROMAZINE HYDROCHLORIDE
     Indication: Hiccups
     Dosage: 12.5 MILLIGRAM, PRN
     Route: 048
     Dates: start: 20230208
  10. MAGNESIUM OXIDE [Concomitant]
     Active Substance: MAGNESIUM OXIDE
     Indication: Constipation
     Dosage: 330 MILLIGRAM, TID
     Route: 048
     Dates: start: 20230209

REACTIONS (1)
  - Rash maculo-papular [Recovering/Resolving]

NARRATIVE: CASE EVENT DATE: 20230216
